FAERS Safety Report 8460621-6 (Version None)
Quarter: 2012Q2

REPORT INFORMATION
  Report Type: 
  Country: None (occurrence: None)
  Receive Date: 20120622
  Receipt Date: 20120618
  Transmission Date: 20120825
  Serious: Yes (Hospitalization, Other)
  Sender: FDA-Public Use
  Company Number: FR-ROCHE-1068226

PATIENT
  Sex: Female

DRUGS (3)
  1. ZELBORAF [Suspect]
     Dates: start: 20120525
  2. ZELBORAF [Suspect]
     Dates: start: 20120605
  3. ZELBORAF [Suspect]
     Indication: PRODUCT USED FOR UNKNOWN INDICATION
     Route: 048
     Dates: start: 20120423

REACTIONS (6)
  - RENAL FAILURE ACUTE [None]
  - RASH [None]
  - TOXIC SKIN ERUPTION [None]
  - HYPOTENSION [None]
  - PYREXIA [None]
  - RASH MACULO-PAPULAR [None]
